FAERS Safety Report 7021341-8 (Version None)
Quarter: 2010Q3

REPORT INFORMATION
  Report Type: 
  Country: None (occurrence: None)
  Receive Date: 20100929
  Receipt Date: 20100917
  Transmission Date: 20110219
  Serious: Yes (Other)
  Sender: FDA-Public Use
  Company Number: US-PFIZER INC-2010003255

PATIENT
  Sex: Female
  Weight: 86.621 kg

DRUGS (2)
  1. NEURONTIN [Suspect]
     Indication: NEURALGIA
     Dosage: UNK
  2. OXYCODONE [Concomitant]
     Dosage: 10 MG, UNK

REACTIONS (1)
  - AMNESIA [None]
